FAERS Safety Report 14813904 (Version 1)
Quarter: 2018Q2

REPORT INFORMATION
  Report Type: Spontaneous
  Country: FR (occurrence: FR)
  Receive Date: 20180426
  Receipt Date: 20180426
  Transmission Date: 20180711
  Serious: Yes (Hospitalization, Other)
  Sender: FDA-Public Use
  Company Number: FR-MERCK KGAA-2046576

PATIENT
  Age: 72 Year
  Sex: Female

DRUGS (1)
  1. NOVOTHYROX [Suspect]
     Active Substance: LEVOTHYROXINE SODIUM
     Indication: PRODUCT USED FOR UNKNOWN INDICATION

REACTIONS (24)
  - Hyperthyroidism [None]
  - Muscle spasms [None]
  - Chest pain [None]
  - Amnesia [None]
  - Vertigo [None]
  - Depressed mood [None]
  - Social avoidant behaviour [None]
  - Alopecia [None]
  - Fatigue [None]
  - Pain [None]
  - Disturbance in attention [None]
  - Headache [None]
  - Myalgia [None]
  - Arthralgia [None]
  - Constipation [Not Recovered/Not Resolved]
  - Irritability [None]
  - Hyperhidrosis [None]
  - Palpitations [None]
  - Insomnia [None]
  - Feeling abnormal [None]
  - Loss of personal independence in daily activities [None]
  - Anxiety [None]
  - Depression [None]
  - Malaise [None]

NARRATIVE: CASE EVENT DATE: 20170913
